FAERS Safety Report 17032400 (Version 3)
Quarter: 2021Q1

REPORT INFORMATION
  Report Type: Report from Study
  Country: JP (occurrence: JP)
  Receive Date: 20191114
  Receipt Date: 20210112
  Transmission Date: 20210419
  Serious: No
  Sender: FDA-Public Use
  Company Number: JP-ASTRAZENECA-2019SE93957

PATIENT
  Age: 53 Year
  Sex: Male
  Weight: 73 kg

DRUGS (1)
  1. IMFINZI [Suspect]
     Active Substance: DURVALUMAB
     Indication: NON-SMALL CELL LUNG CANCER
     Route: 042
     Dates: start: 20190507, end: 20200428

REACTIONS (2)
  - Radiation pneumonitis [Recovering/Resolving]
  - Gout [Recovering/Resolving]

NARRATIVE: CASE EVENT DATE: 20190521
